FAERS Safety Report 24151514 (Version 1)
Quarter: 2024Q3

REPORT INFORMATION
  Report Type: Spontaneous
  Country: US (occurrence: US)
  Receive Date: 20240730
  Receipt Date: 20240730
  Transmission Date: 20241017
  Serious: No
  Sender: PERRIGO
  Company Number: US-PERRIGO-23US009048

PATIENT
  Age: 78 Year
  Sex: Female
  Weight: 54.875 kg

DRUGS (2)
  1. LORATADINE [Suspect]
     Active Substance: LORATADINE
     Indication: Seasonal allergy
     Dosage: 10 MG, QD
     Route: 048
     Dates: start: 20230615, end: 20230809
  2. LORATADINE [Suspect]
     Active Substance: LORATADINE
     Dosage: UNK

REACTIONS (2)
  - Dyspnoea exertional [Not Recovered/Not Resolved]
  - Expired product administered [Unknown]

NARRATIVE: CASE EVENT DATE: 20230615
